FAERS Safety Report 10801365 (Version 1)
Quarter: 2015Q1

REPORT INFORMATION
  Report Type: Spontaneous
  Country: US (occurrence: US)
  Receive Date: 20150217
  Receipt Date: 20150217
  Transmission Date: 20150721
  Serious: No
  Sender: FDA-Public Use
  Company Number: US-DRREDDYS-USA/USA/14/0038943

PATIENT
  Age: 22 Year
  Sex: Female

DRUGS (6)
  1. ZONISAMIDE. [Concomitant]
     Active Substance: ZONISAMIDE
     Indication: HEMIPLEGIC MIGRAINE
     Route: 065
  2. LAMOTRIGINE TABLETS [Suspect]
     Active Substance: LAMOTRIGINE
     Indication: HEMIPLEGIC MIGRAINE
     Route: 065
  3. LEVETIRACETAM 1000 MG [Suspect]
     Active Substance: LEVETIRACETAM
     Indication: HEMIPLEGIC MIGRAINE
     Route: 065
  4. TOPIRAMATE. [Concomitant]
     Active Substance: TOPIRAMATE
     Indication: HEMIPLEGIC MIGRAINE
     Route: 065
  5. VALPROIC ACID. [Concomitant]
     Active Substance: VALPROIC ACID
     Indication: HEMIPLEGIC MIGRAINE
     Route: 065
  6. COENZYME Q10 [Concomitant]
     Active Substance: UBIDECARENONE
     Indication: HEMIPLEGIC MIGRAINE
     Route: 065

REACTIONS (3)
  - Drug ineffective [Unknown]
  - Product quality issue [Unknown]
  - Rash [Unknown]
